FAERS Safety Report 4502327-1 (Version None)
Quarter: 2004Q4

REPORT INFORMATION
  Report Type: 
  Country: None (occurrence: None)
  Receive Date: 20041116
  Receipt Date: 20041109
  Transmission Date: 20050328
  Serious: Yes (Other)
  Sender: FDA-Public Use
  Company Number: ZA-GLAXOSMITHKLINE-B0356698A

PATIENT
  Sex: Female

DRUGS (6)
  1. ZYBAN [Suspect]
     Dosage: 150MG TWICE PER DAY
     Route: 065
     Dates: start: 20041025, end: 20040101
  2. AMITRIPTYLINE HCL [Concomitant]
     Route: 065
  3. ALLOPURINOL [Concomitant]
     Route: 065
  4. HRT [Concomitant]
     Route: 065
  5. SIMVASTATIN [Concomitant]
     Route: 065
  6. ENALAPRIL [Concomitant]
     Route: 065

REACTIONS (3)
  - CONVULSION [None]
  - GRAND MAL CONVULSION [None]
  - TONGUE BITING [None]
